FAERS Safety Report 7370987-6 (Version None)
Quarter: 2011Q1

REPORT INFORMATION
  Report Type: 
  Country: None (occurrence: None)
  Receive Date: 20110324
  Receipt Date: 20110315
  Transmission Date: 20110831
  Serious: No
  Sender: FDA-Public Use
  Company Number: US-BIOGENIDEC-2011BI010088

PATIENT
  Sex: Female

DRUGS (2)
  1. AVONEX [Suspect]
     Route: 030
     Dates: start: 19960501, end: 20001029
  2. AVONEX [Suspect]
     Indication: MULTIPLE SCLEROSIS
     Route: 030
     Dates: start: 20100912

REACTIONS (5)
  - GASTROINTESTINAL DISORDER [None]
  - CONSTIPATION [None]
  - ASTHENIA [None]
  - NIGHT SWEATS [None]
  - NASOPHARYNGITIS [None]
